FAERS Safety Report 4785436-1 (Version None)
Quarter: 2005Q3

REPORT INFORMATION
  Report Type: 
  Country: None (occurrence: None)
  Receive Date: 20050929
  Receipt Date: 20050917
  Transmission Date: 20060218
  Serious: Yes (Hospitalization)
  Sender: FDA-Public Use
  Company Number: 2005130163

PATIENT
  Sex: Female
  Weight: 98.8842 kg

DRUGS (1)
  1. BEXTRA [Suspect]
     Indication: ARTHRALGIA
     Dosage: 10 MG (10 MG,1 IN 1 D), UNKNOWN
     Route: 065
     Dates: start: 20020924, end: 20030101

REACTIONS (3)
  - DRY SKIN [None]
  - KNEE ARTHROPLASTY [None]
  - SKIN DISORDER [None]
